FAERS Safety Report 5331617-8 (Version None)
Quarter: 2007Q2

REPORT INFORMATION
  Report Type: 
  Country: None (occurrence: None)
  Receive Date: 20070516
  Receipt Date: 20070508
  Transmission Date: 20071010
  Serious: Yes (Life-Threatening, Other)
  Sender: FDA-Public Use
  Company Number: 163-21880-07030584

PATIENT
  Age: 60 Year
  Sex: Male

DRUGS (14)
  1. REVLIMID [Suspect]
     Indication: MULTIPLE MYELOMA
     Dosage: SEE IMAGE
     Route: 048
     Dates: start: 20060901, end: 20070101
  2. REVLIMID [Suspect]
     Indication: MULTIPLE MYELOMA
     Dosage: SEE IMAGE
     Route: 048
     Dates: start: 20070201, end: 20070222
  3. REVLIMID [Suspect]
     Indication: MULTIPLE MYELOMA
     Dosage: SEE IMAGE
     Route: 048
     Dates: start: 20070301, end: 20070501
  4. DECADRON [Concomitant]
  5. ADVAIR (SERETIDE MITE) (PILL) [Concomitant]
  6. ALBUTEROL (SALBUTAMOL) (PILL) [Concomitant]
  7. ALLEGRA [Concomitant]
  8. ALLOPURINOL [Concomitant]
  9. ASPIRIN [Concomitant]
  10. HYDROCORTISONE (HYDROCORTISONE) [Concomitant]
  11. POTASSIUM CHLORIDE [Concomitant]
  12. PROTONIX [Concomitant]
  13. TOPROL-XL [Concomitant]
  14. FUROSEMIDE [Concomitant]

REACTIONS (3)
  - CLOSTRIDIUM DIFFICILE COLITIS [None]
  - SEPSIS [None]
  - SIALOADENITIS [None]
